FAERS Safety Report 12383678 (Version 1)
Quarter: 2016Q2

REPORT INFORMATION
  Report Type: Report from Study
  Country: NZ (occurrence: NZ)
  Receive Date: 20160519
  Receipt Date: 20160519
  Transmission Date: 20160815
  Serious: Yes (Hospitalization, Other)
  Sender: FDA-Public Use
  Company Number: PHHY2016NZ065528

PATIENT
  Age: 60 Year
  Sex: Female

DRUGS (3)
  1. TAFINLAR [Suspect]
     Active Substance: DABRAFENIB MESYLATE
     Indication: METASTATIC MALIGNANT MELANOMA
     Dosage: 2 MG, QD
     Route: 048
     Dates: start: 20150402, end: 20160505
  2. ATORVASTATIN [Concomitant]
     Active Substance: ATORVASTATIN
     Indication: BLOOD CHOLESTEROL INCREASED
     Dosage: 40 MG, QD (AT NIGHT)
     Route: 048
  3. MEKINIST [Suspect]
     Active Substance: TRAMETINIB DIMETHYL SULFOXIDE
     Indication: METASTATIC MALIGNANT MELANOMA
     Dosage: 150 MG, BID
     Route: 048
     Dates: start: 20150921, end: 20160505

REACTIONS (29)
  - Pyrexia [Recovered/Resolved]
  - Sinus tachycardia [Unknown]
  - Protein total decreased [Unknown]
  - Pallor [Recovered/Resolved]
  - Nausea [Unknown]
  - Viral infection [Recovered/Resolved]
  - Hypocalcaemia [Unknown]
  - Blood urea decreased [Recovered/Resolved]
  - Gamma-glutamyltransferase increased [Unknown]
  - Vomiting [Recovered/Resolved]
  - Blood pressure decreased [Unknown]
  - Pancytopenia [Unknown]
  - Tremor [Unknown]
  - Micturition urgency [Unknown]
  - Dizziness postural [Recovered/Resolved]
  - Decreased appetite [Unknown]
  - Cerebellar syndrome [Unknown]
  - Flushing [Unknown]
  - Fatigue [Unknown]
  - Hypokalaemia [Recovered/Resolved]
  - Venous pressure jugular decreased [Unknown]
  - Electrocardiogram T wave amplitude decreased [Unknown]
  - Diarrhoea [Unknown]
  - Hyperhidrosis [Unknown]
  - C-reactive protein increased [Recovered/Resolved]
  - Syncope [Recovered/Resolved]
  - Malaise [Unknown]
  - Muscle spasms [Unknown]
  - Liver function test abnormal [Recovered/Resolved]

NARRATIVE: CASE EVENT DATE: 20160502
